FAERS Safety Report 14726408 (Version 1)
Quarter: 2018Q2

REPORT INFORMATION
  Report Type: Spontaneous
  Country: US (occurrence: US)
  Receive Date: 20180406
  Receipt Date: 20180406
  Transmission Date: 20180711
  Serious: Yes (Hospitalization)
  Sender: FDA-Public Use
  Company Number: US-ALVOGEN-2018-ALVOGEN-095687

PATIENT
  Sex: Female
  Weight: 50.8 kg

DRUGS (2)
  1. LISINOPRIL. [Suspect]
     Active Substance: LISINOPRIL
     Indication: HYPERTENSION
     Route: 065
     Dates: end: 201405
  2. TUDORZA PRESSAIR [Suspect]
     Active Substance: ACLIDINIUM BROMIDE
     Indication: CHRONIC OBSTRUCTIVE PULMONARY DISEASE
     Dosage: 60 METERED DOSE INHALER
     Route: 055
     Dates: start: 2013

REACTIONS (9)
  - Upper limb fracture [Unknown]
  - Blood pressure fluctuation [Unknown]
  - Hypotension [Unknown]
  - Dehydration [Recovered/Resolved]
  - Inspiratory capacity decreased [Not Recovered/Not Resolved]
  - Pelvic fracture [Unknown]
  - Dyspnoea [Not Recovered/Not Resolved]
  - Vomiting [Recovered/Resolved]
  - Loss of consciousness [Unknown]

NARRATIVE: CASE EVENT DATE: 2014
